FAERS Safety Report 4487376-4 (Version None)
Quarter: 2004Q4

REPORT INFORMATION
  Report Type: 
  Country: None (occurrence: None)
  Receive Date: 20041027
  Receipt Date: 20041021
  Transmission Date: 20050328
  Serious: Yes (Hospitalization, Other)
  Sender: FDA-Public Use
  Company Number: CA-MERCK-0410CAN00360

PATIENT
  Sex: Male

DRUGS (1)
  1. VIOXX [Suspect]
     Indication: OSTEOARTHRITIS
     Route: 048
     Dates: start: 20010601, end: 20011101

REACTIONS (6)
  - ANXIETY [None]
  - CARDIAC VALVE DISEASE [None]
  - DEMENTIA [None]
  - SWELLING [None]
  - THROMBOSIS [None]
  - TRICUSPID VALVE INCOMPETENCE [None]
